FAERS Safety Report 9870880 (Version 1)
Quarter: 2014Q1

REPORT INFORMATION
  Report Type: Report from Study
  Country: DE (occurrence: DE)
  Receive Date: 20140205
  Receipt Date: 20140205
  Transmission Date: 20141002
  Serious: Yes (Hospitalization)
  Sender: FDA-Public Use
  Company Number: DE-GLAXOSMITHKLINE-B0953613B

PATIENT
  Age: 70 Year
  Sex: Male

DRUGS (1)
  1. OFATUMUMAB [Suspect]
     Indication: CHRONIC LYMPHOCYTIC LEUKAEMIA
     Dosage: 1000MG PER DAY
     Route: 042
     Dates: start: 20130722

REACTIONS (1)
  - Cytomegalovirus infection [Recovered/Resolved]
